FAERS Safety Report 6958529-8 (Version None)
Quarter: 2010Q3

REPORT INFORMATION
  Report Type: 
  Country: None (occurrence: None)
  Receive Date: 20100831
  Receipt Date: 20100823
  Transmission Date: 20110219
  Serious: Yes (Other)
  Sender: FDA-Public Use
  Company Number: US-JNJCH-2010019342

PATIENT
  Age: 9 Month
  Sex: Female
  Weight: 8.2 kg

DRUGS (1)
  1. DESITIN RAPID RELIEF CREAMY [Suspect]
     Indication: PROPHYLAXIS
     Dosage: TEXT:TWO FINGER TIPFUL EVERY DIAPER CHANGE
     Route: 061
     Dates: start: 20100822, end: 20100823

REACTIONS (5)
  - APPLICATION SITE BURN [None]
  - APPLICATION SITE ERYTHEMA [None]
  - CRYING [None]
  - SCREAMING [None]
  - THERMAL BURN [None]
